FAERS Safety Report 19033804 (Version 2)
Quarter: 2021Q1

REPORT INFORMATION
  Report Type: Spontaneous
  Country: IT (occurrence: IT)
  Receive Date: 20210319
  Receipt Date: 20210331
  Transmission Date: 20210420
  Serious: Yes (Hospitalization)
  Sender: FDA-Public Use
  Company Number: IT-ABBVIE-21K-083-3821768-00

PATIENT
  Age: 37 Year
  Sex: Male
  Weight: 88 kg

DRUGS (2)
  1. IMRALDI [Suspect]
     Active Substance: ADALIMUMAB
     Indication: ANKYLOSING SPONDYLITIS
     Route: 058
     Dates: start: 20201001, end: 20210301
  2. HUMIRA [Suspect]
     Active Substance: ADALIMUMAB
     Indication: ANKYLOSING SPONDYLITIS
     Route: 058

REACTIONS (3)
  - Drug ineffective [Not Recovered/Not Resolved]
  - Uveitis [Not Recovered/Not Resolved]
  - Ankylosing spondylitis [Not Recovered/Not Resolved]

NARRATIVE: CASE EVENT DATE: 20201115
